FAERS Safety Report 25503677 (Version 1)
Quarter: 2025Q3

REPORT INFORMATION
  Report Type: Report from Study
  Country: US (occurrence: US)
  Receive Date: 20250702
  Receipt Date: 20250702
  Transmission Date: 20251020
  Serious: Yes (Death, Hospitalization)
  Sender: MYLAN
  Company Number: US-MYLANLABS-2025M1055042

PATIENT
  Age: 23 Day
  Sex: Male

DRUGS (36)
  1. NOREPINEPHRINE [Suspect]
     Active Substance: NOREPINEPHRINE
     Indication: Capillary leak syndrome
  2. NOREPINEPHRINE [Suspect]
     Active Substance: NOREPINEPHRINE
     Route: 065
  3. NOREPINEPHRINE [Suspect]
     Active Substance: NOREPINEPHRINE
     Route: 065
  4. NOREPINEPHRINE [Suspect]
     Active Substance: NOREPINEPHRINE
  5. EPINEPHRINE [Suspect]
     Active Substance: EPINEPHRINE
     Indication: Capillary leak syndrome
  6. EPINEPHRINE [Suspect]
     Active Substance: EPINEPHRINE
     Route: 065
  7. EPINEPHRINE [Suspect]
     Active Substance: EPINEPHRINE
     Route: 065
  8. EPINEPHRINE [Suspect]
     Active Substance: EPINEPHRINE
  9. AMINOPHYLLINE [Suspect]
     Active Substance: AMINOPHYLLINE
     Indication: Capillary leak syndrome
  10. AMINOPHYLLINE [Suspect]
     Active Substance: AMINOPHYLLINE
  11. AMINOPHYLLINE [Suspect]
     Active Substance: AMINOPHYLLINE
     Route: 042
  12. AMINOPHYLLINE [Suspect]
     Active Substance: AMINOPHYLLINE
     Route: 042
  13. AMINOPHYLLINE [Suspect]
     Active Substance: AMINOPHYLLINE
     Dosage: 2 MILLIGRAM/KILOGRAM, Q8H
  14. AMINOPHYLLINE [Suspect]
     Active Substance: AMINOPHYLLINE
     Dosage: 2 MILLIGRAM/KILOGRAM, Q8H
  15. AMINOPHYLLINE [Suspect]
     Active Substance: AMINOPHYLLINE
     Dosage: 2 MILLIGRAM/KILOGRAM, Q8H
     Route: 042
  16. AMINOPHYLLINE [Suspect]
     Active Substance: AMINOPHYLLINE
     Dosage: 2 MILLIGRAM/KILOGRAM, Q8H
     Route: 042
  17. IMMUNE GLOBULIN NOS [Suspect]
     Active Substance: IMMUNE GLOBULIN NOS
     Indication: Capillary leak syndrome
     Dosage: 1G/KG, FOR 3 DAYS, QD
  18. IMMUNE GLOBULIN NOS [Suspect]
     Active Substance: IMMUNE GLOBULIN NOS
     Dosage: 1G/KG, FOR 3 DAYS, QD
     Route: 042
  19. IMMUNE GLOBULIN NOS [Suspect]
     Active Substance: IMMUNE GLOBULIN NOS
     Dosage: 1G/KG, FOR 3 DAYS, QD
     Route: 042
  20. IMMUNE GLOBULIN NOS [Suspect]
     Active Substance: IMMUNE GLOBULIN NOS
     Dosage: 1G/KG, FOR 3 DAYS, QD
  21. DOPAMINE [Suspect]
     Active Substance: DOPAMINE HYDROCHLORIDE
     Indication: Capillary leak syndrome
  22. DOPAMINE [Suspect]
     Active Substance: DOPAMINE HYDROCHLORIDE
     Route: 065
  23. DOPAMINE [Suspect]
     Active Substance: DOPAMINE HYDROCHLORIDE
     Route: 065
  24. DOPAMINE [Suspect]
     Active Substance: DOPAMINE HYDROCHLORIDE
  25. VASOPRESSIN [Suspect]
     Active Substance: VASOPRESSIN
     Indication: Capillary leak syndrome
  26. VASOPRESSIN [Suspect]
     Active Substance: VASOPRESSIN
     Route: 065
  27. VASOPRESSIN [Suspect]
     Active Substance: VASOPRESSIN
     Route: 065
  28. VASOPRESSIN [Suspect]
     Active Substance: VASOPRESSIN
  29. DOBUTAMINE [Suspect]
     Active Substance: DOBUTAMINE HYDROCHLORIDE
     Indication: Capillary leak syndrome
  30. DOBUTAMINE [Suspect]
     Active Substance: DOBUTAMINE HYDROCHLORIDE
     Route: 065
  31. DOBUTAMINE [Suspect]
     Active Substance: DOBUTAMINE HYDROCHLORIDE
     Route: 065
  32. DOBUTAMINE [Suspect]
     Active Substance: DOBUTAMINE HYDROCHLORIDE
  33. INFLIXIMAB [Suspect]
     Active Substance: INFLIXIMAB
     Indication: Capillary leak syndrome
  34. INFLIXIMAB [Suspect]
     Active Substance: INFLIXIMAB
     Route: 065
  35. INFLIXIMAB [Suspect]
     Active Substance: INFLIXIMAB
     Route: 065
  36. INFLIXIMAB [Suspect]
     Active Substance: INFLIXIMAB

REACTIONS (2)
  - Drug ineffective [Fatal]
  - Off label use [Unknown]
